FAERS Safety Report 8985646 (Version 1)
Quarter: 2012Q4

REPORT INFORMATION
  Report Type: Report from Study
  Country: CA (occurrence: CA)
  Receive Date: 20121226
  Receipt Date: 20121226
  Transmission Date: 20130627
  Serious: Yes (Other)
  Sender: FDA-Public Use
  Company Number: CA-JNJFOC-20121013870

PATIENT
  Sex: Female
  Weight: 66 kg

DRUGS (3)
  1. REMICADE [Suspect]
     Indication: CROHN^S DISEASE
     Route: 042
     Dates: start: 20120110
  2. PREDNISONE [Concomitant]
     Dosage: weaning off
     Route: 065
  3. METHOTREXATE [Concomitant]
     Route: 065

REACTIONS (5)
  - Intestinal obstruction [Unknown]
  - Cholelithiasis [Recovering/Resolving]
  - Fatigue [Recovering/Resolving]
  - Asthenia [Unknown]
  - Confusional state [Unknown]
